FAERS Safety Report 4989910-4 (Version None)
Quarter: 2006Q2

REPORT INFORMATION
  Report Type: 
  Country: None (occurrence: None)
  Receive Date: 20060503
  Receipt Date: 20060421
  Transmission Date: 20061013
  Serious: Yes (Death, Hospitalization)
  Sender: FDA-Public Use
  Company Number: IT-BRISTOL-MYERS SQUIBB COMPANY-13359013

PATIENT
  Age: 84 Year
  Sex: Female

DRUGS (4)
  1. GLUCOPHAGE [Suspect]
     Indication: DIABETES MELLITUS
     Route: 048
     Dates: start: 20030301
  2. LOPRESSOR [Suspect]
     Indication: ATRIAL FIBRILLATION
     Route: 048
     Dates: start: 20050901, end: 20060324
  3. LANOXIN [Suspect]
     Indication: ATRIAL FIBRILLATION
     Route: 048
     Dates: start: 20060318, end: 20060324
  4. ENAPREN [Concomitant]
     Dosage: DOSAGE FORM = 20 + 10 MG DAILY

REACTIONS (10)
  - ATRIOVENTRICULAR BLOCK [None]
  - BLOOD POTASSIUM INCREASED [None]
  - CARDIAC ARREST [None]
  - CHEST DISCOMFORT [None]
  - DIARRHOEA [None]
  - LACTIC ACIDOSIS [None]
  - MALAISE [None]
  - NAUSEA [None]
  - RENAL FAILURE ACUTE [None]
  - VOMITING [None]
